FAERS Safety Report 23766184 (Version 2)
Quarter: 2025Q2

REPORT INFORMATION
  Report Type: Spontaneous
  Country: JP (occurrence: JP)
  Receive Date: 20240422
  Receipt Date: 20250521
  Transmission Date: 20250717
  Serious: Yes (Hospitalization)
  Sender: ROCHE
  Company Number: JP-CHUGAI-2024012418

PATIENT
  Age: 32 Year
  Sex: Female
  Weight: 45.0 kg

DRUGS (1)
  1. ACTEMRA [Suspect]
     Active Substance: TOCILIZUMAB
     Indication: Takayasu^s arteritis
     Dosage: UNK, ONCE/2WEEKS
     Route: 065

REACTIONS (4)
  - Aortic aneurysm [Recovering/Resolving]
  - Endocarditis [Recovering/Resolving]
  - Abscess [Recovering/Resolving]
  - Off label use [Unknown]
